FAERS Safety Report 8955492 (Version 1)
Quarter: 2012Q4

REPORT INFORMATION
  Report Type: 
  Country: US (occurrence: None)
  Receive Date: 20121130
  Receipt Date: 20121130
  Transmission Date: 20130627
  Serious: Yes (Hospitalization)
  Sender: FDA-Public Use
  Company Number: FK201203526

PATIENT

DRUGS (2)
  1. GEMCITABINE [Suspect]
     Indication: RHABDOMYOSARCOMA
     Dosage: , 90-min infusion on days 1 and 8 (not otherwise specified)
     Route: 042
  2. DOCETAXEL [Suspect]
     Indication: RHABDOMYOSARCOMA
     Dosage: , 60-min infusion on day 8 (not otherwise specified)
     Route: 042

REACTIONS (2)
  - Hypercalcaemia [None]
  - Blood creatinine increased [None]
